FAERS Safety Report 7533021-0 (Version None)
Quarter: 2011Q2

REPORT INFORMATION
  Report Type: 
  Country: None (occurrence: None)
  Receive Date: 20110608
  Receipt Date: 20110603
  Transmission Date: 20111010
  Serious: Yes (Hospitalization, Disabling, Other)
  Sender: FDA-Public Use
  Company Number: GB-BAYER-201026029GPV

PATIENT
  Age: 36 Year
  Sex: Female
  Weight: 50 kg

DRUGS (11)
  1. MORPHINE [Concomitant]
     Dosage: UNK
     Dates: start: 20091021, end: 20091021
  2. KEFLEX [Concomitant]
     Dosage: UNK
     Dates: start: 20091016, end: 20091020
  3. CIPROFLOXACIN [Suspect]
  4. DIHYDROCODEINE [CODEINE HYDROCHLORIDE] [Concomitant]
     Dosage: UNK
     Dates: start: 20091021, end: 20091023
  5. MUSCLE RELAXANTS [Concomitant]
     Dosage: UNK
     Dates: start: 20091021, end: 20091021
  6. TRIMETHOPRIM [Concomitant]
     Dosage: UNK
     Dates: start: 20091008, end: 20091009
  7. AMOXICILLIN [Concomitant]
  8. TRAMADOL HCL [Concomitant]
     Indication: PRODUCT USED FOR UNKNOWN INDICATION
     Dosage: UNK
     Dates: start: 20091021, end: 20091023
  9. LACTULOSE [Concomitant]
     Dosage: UNK
     Dates: start: 20091021, end: 20091023
  10. ANTISICKNESS PILL [Concomitant]
     Dosage: UNK
     Dates: start: 20091021, end: 20091023
  11. CIPROFLOXACIN [Suspect]
     Indication: CYSTITIS
     Dosage: 500 MG, BID
     Route: 048
     Dates: start: 20091021, end: 20091024

REACTIONS (27)
  - ARTHRALGIA [None]
  - PERIPHERAL COLDNESS [None]
  - TENDON RUPTURE [None]
  - TREMOR [None]
  - PLANTAR FASCIITIS [None]
  - MUSCULAR WEAKNESS [None]
  - ARTHROPATHY [None]
  - PANIC ATTACK [None]
  - NERVOUS SYSTEM DISORDER [None]
  - CRYING [None]
  - COLD SWEAT [None]
  - CHEST DISCOMFORT [None]
  - TENDONITIS [None]
  - SKIN WARM [None]
  - JOINT CREPITATION [None]
  - ALOPECIA [None]
  - PAIN IN EXTREMITY [None]
  - DEPRESSION [None]
  - PAIN [None]
  - CHEST PAIN [None]
  - HEART RATE DECREASED [None]
  - MUSCLE SPASMS [None]
  - OEDEMA PERIPHERAL [None]
  - PARAESTHESIA [None]
  - HYPOAESTHESIA [None]
  - VASODILATATION [None]
  - SKIN DISCOLOURATION [None]
